FAERS Safety Report 5212566-2 (Version None)
Quarter: 2007Q1

REPORT INFORMATION
  Report Type: 
  Country: None (occurrence: None)
  Receive Date: 20070118
  Receipt Date: 20070108
  Transmission Date: 20070707
  Serious: Yes (Other)
  Sender: FDA-Public Use
  Company Number: FR-PFIZER INC-2006149170

PATIENT
  Sex: Male
  Weight: 94 kg

DRUGS (9)
  1. LYRICA [Suspect]
     Indication: NEUROPATHY
     Dates: start: 20061120, end: 20061121
  2. DURAGESIC-100 [Interacting]
     Route: 061
  3. ACTISKENAN [Interacting]
  4. ILOMEDINE [Concomitant]
  5. LOVENOX [Concomitant]
     Route: 058
  6. IMOVANE [Concomitant]
  7. FORLAX [Concomitant]
  8. HUMALOG [Concomitant]
     Route: 058
  9. INSULIN [Concomitant]
     Route: 058

REACTIONS (3)
  - DRUG INTERACTION [None]
  - LOCKED-IN SYNDROME [None]
  - SOMNOLENCE [None]
